FAERS Safety Report 5007092-X (Version None)
Quarter: 2006Q1

REPORT INFORMATION
  Report Type: 
  Country: None (occurrence: None)
  Receive Date: 20060330
  Receipt Date: 20060202
  Transmission Date: 20060701
  Serious: Yes (Other)
  Sender: FDA-Public Use
  Company Number: 2005159262

PATIENT
  Sex: Female

DRUGS (1)
  1. ZMAX [Suspect]
     Indication: SINUSITIS
     Dosage: 1 GRAM, ORAL
     Route: 048
     Dates: end: 20051027

REACTIONS (6)
  - ABDOMINAL PAIN [None]
  - CHILLS [None]
  - COLITIS [None]
  - DIARRHOEA [None]
  - NAUSEA [None]
  - RECTAL HAEMORRHAGE [None]
